FAERS Safety Report 4425620-X (Version None)
Quarter: 2004Q3

REPORT INFORMATION
  Report Type: 
  Country: None (occurrence: None)
  Receive Date: 20040716
  Receipt Date: 20030808
  Transmission Date: 20050211
  Serious: Yes (Other)
  Sender: FDA-Public Use
  Company Number: HQWYE217319AUG03

PATIENT
  Age: 45 Year
  Sex: Female
  Weight: 79.45 kg

DRUGS (1)
  1. ADVIL [Suspect]
     Indication: HEADACHE
     Dosage: 1 TABLET TAKEN ONE TIME, ORAL
     Route: 048
     Dates: start: 19980101

REACTIONS (2)
  - CONVULSION [None]
  - PYREXIA [None]
